FAERS Safety Report 9803785 (Version 1)
Quarter: 2014Q1

REPORT INFORMATION
  Report Type: Spontaneous
  Country: US (occurrence: US)
  Receive Date: 20140108
  Receipt Date: 20140108
  Transmission Date: 20141002
  Serious: No
  Sender: FDA-Public Use
  Company Number: US-GLAXOSMITHKLINE-A1037844A

PATIENT
  Sex: Female

DRUGS (13)
  1. LOVAZA [Suspect]
     Indication: BLOOD CHOLESTEROL INCREASED
     Dosage: 2CAP TWICE PER DAY
     Route: 048
     Dates: start: 2011, end: 201206
  2. DIGOXIN [Concomitant]
  3. NEXIUM [Concomitant]
  4. ADVAIR [Concomitant]
  5. SPIRIVA [Concomitant]
  6. ALBUTEROL INHALER [Concomitant]
  7. ALBUTEROL NEBULIZER [Concomitant]
  8. VITAMIN D [Concomitant]
  9. LIPITOR [Concomitant]
  10. FOLIC ACID [Concomitant]
  11. STOOL SOFTENER [Concomitant]
  12. LAXATIVE [Concomitant]
  13. IRON [Concomitant]

REACTIONS (1)
  - Drug ineffective [Not Recovered/Not Resolved]
